APPROVED DRUG PRODUCT: FLUDARABINE PHOSPHATE
Active Ingredient: FLUDARABINE PHOSPHATE
Strength: 50MG/VIAL
Dosage Form/Route: INJECTABLE;INJECTION
Application: A078610 | Product #001 | TE Code: AP
Applicant: ACTAVIS TOTOWA LLC
Approved: Feb 11, 2009 | RLD: No | RS: Yes | Type: RX